FAERS Safety Report 7589123-6 (Version None)
Quarter: 2011Q3

REPORT INFORMATION
  Report Type: 
  Country: None (occurrence: None)
  Receive Date: 20110705
  Receipt Date: 20110621
  Transmission Date: 20111222
  Serious: Yes (Hospitalization)
  Sender: FDA-Public Use
  Company Number: US-BAYER-2011-053740

PATIENT
  Age: 34 Year
  Sex: Male

DRUGS (3)
  1. ACETYLSALICYLIC ACID SRT [Suspect]
     Indication: HEADACHE
     Route: 048
  2. FONDAPARINUX SODIUM [Suspect]
     Indication: POLYCYTHAEMIA VERA
  3. FONDAPARINUX SODIUM [Suspect]
     Indication: THROMBOSIS PROPHYLAXIS

REACTIONS (2)
  - SUBDURAL HAEMORRHAGE [None]
  - SUBDURAL HAEMATOMA [None]
